FAERS Safety Report 17325144 (Version 2)
Quarter: 2020Q3

REPORT INFORMATION
  Report Type: Report from Study
  Country: None (occurrence: US)
  Receive Date: 20200127
  Receipt Date: 20200827
  Transmission Date: 20201102
  Serious: Yes (Other)
  Sender: FDA-Public Use
  Company Number: US-ABBVIE-19K-163-3140140-00

PATIENT
  Sex: Male

DRUGS (5)
  1. IMBRUVICA [Suspect]
     Active Substance: IBRUTINIB
     Dosage: 420 MG, QD
     Route: 048
     Dates: start: 20180514
  2. IMBRUVICA [Suspect]
     Active Substance: IBRUTINIB
     Indication: WALDENSTROM^S MACROGLOBULINAEMIA
     Dosage: 420 MG, QD
     Route: 048
     Dates: start: 20180111
  3. IMBRUVICA [Suspect]
     Active Substance: IBRUTINIB
     Indication: WALDENSTROM^S MACROGLOBULINAEMIA
     Dosage: 420 MG, QD
     Route: 048
     Dates: start: 20190317
  4. IMBRUVICA [Suspect]
     Active Substance: IBRUTINIB
     Route: 048
     Dates: start: 20180509
  5. IMBRUVICA [Suspect]
     Active Substance: IBRUTINIB
     Route: 048

REACTIONS (15)
  - Hair texture abnormal [Unknown]
  - White blood cell count increased [Unknown]
  - Onychoclasis [Unknown]
  - Nausea [Unknown]
  - Prostatitis [Not Recovered/Not Resolved]
  - Type 2 diabetes mellitus [Unknown]
  - Increased appetite [Unknown]
  - Product dose omission issue [Unknown]
  - Fatigue [Unknown]
  - Myalgia [Unknown]
  - Contusion [Not Recovered/Not Resolved]
  - Constipation [Unknown]
  - Stomatitis [Unknown]
  - Decreased appetite [Unknown]
  - Muscle spasms [Unknown]
